FAERS Safety Report 4443395-5 (Version None)
Quarter: 2004Q3

REPORT INFORMATION
  Report Type: 
  Country: None (occurrence: None)
  Receive Date: 20040903
  Receipt Date: 20040903
  Transmission Date: 20050211
  Serious: No
  Sender: FDA-Public Use
  Company Number: None

PATIENT
  Age: 50 Year
  Sex: Male
  Weight: 88.4514 kg

DRUGS (1)
  1. CARIMUNE [Suspect]
     Indication: IMMUNODEFICIENCY COMMON VARIABLE
     Dosage: IV INFUSION
     Route: 042
     Dates: start: 20040817

REACTIONS (5)
  - BACK PAIN [None]
  - CHILLS [None]
  - HEADACHE [None]
  - INFUSION RELATED REACTION [None]
  - TREMOR [None]
